FAERS Safety Report 7752341-8 (Version None)
Quarter: 2011Q3

REPORT INFORMATION
  Report Type: 
  Country: None (occurrence: None)
  Receive Date: 20110915
  Receipt Date: 20110902
  Transmission Date: 20111222
  Serious: Yes (Hospitalization)
  Sender: FDA-Public Use
  Company Number: US-ELI_LILLY_AND_COMPANY-US201109002062

PATIENT
  Sex: Male

DRUGS (9)
  1. CYMBALTA [Suspect]
     Indication: BACK PAIN
     Dosage: 60 MG, QD
     Dates: start: 20080101
  2. LIPITOR [Concomitant]
     Dosage: 40 MG, QD
  3. VITAMIN D [Concomitant]
     Dosage: 1 DF, WEEKLY (1/W)
  4. AMBIEN [Concomitant]
     Dosage: 5 MG, EACH EVENING
  5. LANTUS [Concomitant]
     Dosage: 46 U, QD
  6. CELEBREX [Concomitant]
     Dosage: 200 MG, QD
  7. METFORMIN HYDROCHLORIDE [Concomitant]
     Dosage: 1000 MG, BID
  8. TRICOR [Concomitant]
     Dosage: UNK, QD
  9. ACTOS [Concomitant]
     Dosage: 30 MG, QD

REACTIONS (6)
  - VERTIGO [None]
  - LIBIDO DISORDER [None]
  - CHEST PAIN [None]
  - VISION BLURRED [None]
  - MOBILITY DECREASED [None]
  - PALPITATIONS [None]
